FAERS Safety Report 5047394-4 (Version None)
Quarter: 2006Q3

REPORT INFORMATION
  Report Type: 
  Country: None (occurrence: None)
  Receive Date: 20060703
  Receipt Date: 20060620
  Transmission Date: 20061208
  Serious: Yes (Hospitalization)
  Sender: FDA-Public Use
  Company Number: 2006077439

PATIENT
  Age: 57 Year
  Sex: Female
  Weight: 56 kg

DRUGS (3)
  1. SUTENT [Suspect]
     Indication: NON-SMALL CELL LUNG CANCER
     Dosage: (37.5 MG, ONCE DAILY INTERVAL:  DURING 28 DAYS), ORAL
     Route: 048
     Dates: start: 20060614, end: 20060618
  2. METOPROLOL TARTRATE [Concomitant]
  3. MODURETIC 5-50 [Concomitant]

REACTIONS (1)
  - PULMONARY EMBOLISM [None]
